FAERS Safety Report 12611767 (Version 3)
Quarter: 2016Q3

REPORT INFORMATION
  Report Type: Report from Study
  Country: US (occurrence: US)
  Receive Date: 20160801
  Receipt Date: 20160829
  Transmission Date: 20161109
  Serious: Yes (Hospitalization, Other)
  Sender: FDA-Public Use
  Company Number: US-JNJFOC-20160725206

PATIENT
  Age: 81 Year
  Sex: Male
  Weight: 63 kg

DRUGS (19)
  1. FINASTERIDE. [Concomitant]
     Active Substance: FINASTERIDE
     Route: 048
  2. KLOR-CON [Concomitant]
     Active Substance: POTASSIUM CHLORIDE
  3. SERENOA REPENS [Concomitant]
     Route: 048
  4. IMBRUVICA [Suspect]
     Active Substance: IBRUTINIB
     Indication: MANTLE CELL LYMPHOMA
     Route: 048
     Dates: start: 20151207
  5. VITAMIN B3 [Concomitant]
     Active Substance: NIACIN
  6. ASPIRIN. [Concomitant]
     Active Substance: ASPIRIN
     Route: 048
  7. CARVEDILOL. [Concomitant]
     Active Substance: CARVEDILOL
     Route: 048
  8. CETRIZINE [Concomitant]
     Active Substance: CETIRIZINE HYDROCHLORIDE
     Route: 048
  9. GLUCOSAMINE CHONDROITIN SULFATE [Concomitant]
     Route: 048
  10. IMBRUVICA [Suspect]
     Active Substance: IBRUTINIB
     Indication: MANTLE CELL LYMPHOMA
     Route: 048
     Dates: start: 20140730
  11. MIRTAZAPINE. [Concomitant]
     Active Substance: MIRTAZAPINE
     Route: 048
  12. SERTRALINE HCL [Concomitant]
     Active Substance: SERTRALINE HYDROCHLORIDE
     Route: 048
  13. LEVOTHYROXINE SODIUM. [Concomitant]
     Active Substance: LEVOTHYROXINE SODIUM
     Route: 048
  14. LASIX [Concomitant]
     Active Substance: FUROSEMIDE
     Route: 048
  15. SIMVASTATIN. [Concomitant]
     Active Substance: SIMVASTATIN
     Route: 048
  16. ATORVASTATIN CALCIUM. [Concomitant]
     Active Substance: ATORVASTATIN CALCIUM
     Route: 048
  17. IMBRUVICA [Suspect]
     Active Substance: IBRUTINIB
     Indication: MANTLE CELL LYMPHOMA
     Route: 048
     Dates: start: 20151207
  18. CALCIUM CITRATE [Concomitant]
     Active Substance: CALCIUM CITRATE
     Route: 048
  19. VITAMIN B12 [Concomitant]
     Active Substance: CYANOCOBALAMIN
     Route: 048

REACTIONS (13)
  - Cardiac failure congestive [Unknown]
  - Mediastinal effusion [Unknown]
  - Pneumonia [Unknown]
  - Intracranial mass [Unknown]
  - Pleural effusion [Unknown]
  - Pulmonary mass [Unknown]
  - Arterial disorder [Unknown]
  - Nausea [Recovered/Resolved]
  - Dry skin [Unknown]
  - Colitis [Not Recovered/Not Resolved]
  - Superior vena cava occlusion [Unknown]
  - Lymphadenopathy mediastinal [Unknown]
  - Atrial fibrillation [Unknown]

NARRATIVE: CASE EVENT DATE: 20151003
